FAERS Safety Report 11389868 (Version 1)
Quarter: 2015Q3

REPORT INFORMATION
  Report Type: Spontaneous
  Country: CN (occurrence: CN)
  Receive Date: 20150818
  Receipt Date: 20150818
  Transmission Date: 20151125
  Serious: Yes (Other)
  Sender: FDA-Public Use
  Company Number: CN-009507513-1508CHN003931

PATIENT
  Age: 66 Year
  Sex: Male

DRUGS (2)
  1. TAMSULOSIN HYDROCHLORIDE. [Concomitant]
     Active Substance: TAMSULOSIN HYDROCHLORIDE
     Route: 048
  2. PROSCAR [Suspect]
     Active Substance: FINASTERIDE
     Indication: BENIGN PROSTATIC HYPERPLASIA
     Dosage: 5 MG, QD
     Route: 048
     Dates: start: 20150719, end: 201508

REACTIONS (2)
  - Benign prostatic hyperplasia [Unknown]
  - Urinary retention [Unknown]

NARRATIVE: CASE EVENT DATE: 201508
